FAERS Safety Report 10085715 (Version 3)
Quarter: 2015Q2

REPORT INFORMATION
  Report Type: Spontaneous
  Country: US (occurrence: None)
  Receive Date: 20140416
  Receipt Date: 20150521
  Transmission Date: 20150821
  Serious: Yes (Other)
  Sender: FDA-Public Use
  Company Number: ADR-2014-00607

PATIENT
  Age: 48 Year
  Sex: Male

DRUGS (2)
  1. BACLOFEN. [Suspect]
     Active Substance: BACLOFEN
  2. BACLOFEN. [Suspect]
     Active Substance: BACLOFEN
     Indication: MUSCLE SPASTICITY

REACTIONS (16)
  - Underdose [None]
  - Visual impairment [None]
  - Muscle spasticity [None]
  - Overdose [None]
  - Dysphonia [None]
  - Feeling drunk [None]
  - Pain [None]
  - Adverse drug reaction [None]
  - Abdominal discomfort [None]
  - Muscle spasms [None]
  - Incorrect dose administered [None]
  - Gastric disorder [None]
  - Feeling abnormal [None]
  - Device malfunction [None]
  - Asthenia [None]
  - General physical health deterioration [None]
